FAERS Safety Report 11553895 (Version 1)
Quarter: 2015Q3

REPORT INFORMATION
  Report Type: Other
  Country: US (occurrence: US)
  Receive Date: 20150925
  Receipt Date: 20150925
  Transmission Date: 20151125
  Serious: Yes (Other)
  Sender: FDA-Public Use
  Company Number: US-ENDO PHARMACEUTICALS INC-2015-002888

PATIENT
  Age: 54 Year
  Sex: Male

DRUGS (2)
  1. TRAMADOL. [Concomitant]
     Active Substance: TRAMADOL
     Indication: PRODUCT USED FOR UNKNOWN INDICATION
  2. BACLOFEN TABLETS 10MG [Suspect]
     Active Substance: BACLOFEN
     Indication: PAIN
     Route: 065

REACTIONS (2)
  - Incorrect dose administered [Unknown]
  - Toxic encephalopathy [Recovered/Resolved]
